FAERS Safety Report 7599379-1 (Version None)
Quarter: 2011Q3

REPORT INFORMATION
  Report Type: 
  Country: None (occurrence: None)
  Receive Date: 20110711
  Receipt Date: 20110628
  Transmission Date: 20111222
  Serious: Yes (Life-Threatening)
  Sender: FDA-Public Use
  Company Number: US-BAYER-2010-003200

PATIENT
  Age: 25 Year
  Sex: Female
  Weight: 97.506 kg

DRUGS (1)
  1. YAZ [Suspect]
     Indication: ACNE
     Dosage: UNK
     Dates: start: 20070101

REACTIONS (6)
  - RENAL INFARCT [None]
  - PAIN [None]
  - ANXIETY [None]
  - FATIGUE [None]
  - EMBOLISM ARTERIAL [None]
  - ASTHENIA [None]
